FAERS Safety Report 12997267 (Version 1)
Quarter: 2016Q4

REPORT INFORMATION
  Report Type: Other
  Country: US (occurrence: US)
  Receive Date: 20161205
  Receipt Date: 20161205
  Transmission Date: 20170207
  Serious: Yes (Hospitalization)
  Sender: FDA-Public Use
  Company Number: US-SHIRE-US201618138

PATIENT
  Age: 63 Year
  Sex: Female
  Weight: 74.6 kg

DRUGS (1)
  1. GATTEX [Suspect]
     Active Substance: TEDUGLUTIDE\WATER
     Indication: SHORT-BOWEL SYNDROME
     Dosage: 0.186 ML, 1X/DAY:QD
     Route: 058
     Dates: start: 20160902, end: 201611

REACTIONS (1)
  - Nonspecific reaction [Unknown]

NARRATIVE: CASE EVENT DATE: 201611
